FAERS Safety Report 17540179 (Version 1)
Quarter: 2020Q1

REPORT INFORMATION
  Report Type: Spontaneous
  Country: US (occurrence: US)
  Receive Date: 20200313
  Receipt Date: 20200313
  Transmission Date: 20200409
  Serious: Yes (Other)
  Sender: FDA-Public Use
  Company Number: US-PFIZER INC-2020106761

PATIENT
  Age: 38 Year
  Sex: Male
  Weight: 86.18 kg

DRUGS (3)
  1. DILANTIN [Suspect]
     Active Substance: PHENYTOIN
     Indication: SEIZURE
     Dosage: 100 MG, UNK
     Dates: start: 2019
  2. DILANTIN [Suspect]
     Active Substance: PHENYTOIN
     Indication: EPILEPSY
     Dosage: 30 MG, UNK
     Dates: start: 2019
  3. DILANTIN [Suspect]
     Active Substance: PHENYTOIN
     Dosage: 460 MG, DAILY (HE WOULD TAKE FOUR OF THE 100MG TABLETS AND TWO OF THE 30 MG TABLETS)
     Dates: start: 1994

REACTIONS (3)
  - Drug level decreased [Recovered/Resolved]
  - Infection [Unknown]
  - Seizure [Recovered/Resolved]

NARRATIVE: CASE EVENT DATE: 201912
